FAERS Safety Report 8581408-X (Version None)
Quarter: 2012Q3

REPORT INFORMATION
  Report Type: 
  Country: None (occurrence: None)
  Receive Date: 20120809
  Receipt Date: 20120802
  Transmission Date: 20120928
  Serious: Yes (Other)
  Sender: FDA-Public Use
  Company Number: JP-SANOFI-AVENTIS-2012SA051442

PATIENT
  Age: 38 Year
  Sex: Female

DRUGS (4)
  1. VALSARTAN AND HYDROCHLOROTHIAZIDE [Concomitant]
     Route: 048
     Dates: start: 20110614
  2. CRESTOR [Concomitant]
     Route: 048
     Dates: start: 20080528
  3. INSULIN GLULISINE [Suspect]
     Indication: DIABETES MELLITUS
     Dosage: 16-18-18
     Route: 058
     Dates: start: 20101008
  4. LANTUS [Concomitant]
     Indication: DIABETES MELLITUS
     Dosage: DOSE:15 UNIT(S)
     Route: 058
     Dates: start: 20081017

REACTIONS (1)
  - RENAL DISORDER [None]
